FAERS Safety Report 8410824-1 (Version None)
Quarter: 2012Q2

REPORT INFORMATION
  Report Type: 
  Country: None (occurrence: None)
  Receive Date: 20120529
  Receipt Date: 20060309
  Transmission Date: 20120825
  Serious: Yes (Hospitalization)
  Sender: FDA-Public Use
  Company Number: 15691-USA-06-0752

PATIENT
  Age: 56 Year
  Sex: Female

DRUGS (20)
  1. COUMADIN [Concomitant]
  2. ZAROXOLYN [Concomitant]
  3. COREG [Concomitant]
  4. NEURONTIN [Concomitant]
  5. PLAQUENIL [Concomitant]
  6. TOLVAPTAN (TOLVAPTAN(V4.1)) 30MG [Suspect]
     Indication: CARDIAC FAILURE CONGESTIVE
     Dosage: 30 MG, QD, ORAL
     Route: 048
     Dates: start: 20050811
  7. ASPIRIN [Concomitant]
  8. PERCOCET [Concomitant]
  9. PREDNISONE TAB [Concomitant]
  10. VALIUM [Concomitant]
  11. SPIRONOLACTONE [Concomitant]
  12. COLCHICINE [Concomitant]
  13. PROTONIX [Concomitant]
  14. DIGOXIN [Concomitant]
  15. LOSARTAN POTASSIUM [Concomitant]
  16. POTASSIUM CHLORIDE [Concomitant]
  17. ALLOPURINOL [Concomitant]
  18. COMBIVENT [Concomitant]
  19. INSULIN (INSULIN) [Concomitant]
  20. LASIX (FUROSEMIDE, FUROSEMIDE SODIUM) [Concomitant]

REACTIONS (8)
  - ARTHRALGIA [None]
  - BUNDLE BRANCH BLOCK RIGHT [None]
  - ATRIOVENTRICULAR BLOCK FIRST DEGREE [None]
  - CARDIAC FAILURE CONGESTIVE [None]
  - ABDOMINAL PAIN [None]
  - CONDITION AGGRAVATED [None]
  - HEPATIC CONGESTION [None]
  - EXTRASYSTOLES [None]
